FAERS Safety Report 11910977 (Version 2)
Quarter: 2016Q1

REPORT INFORMATION
  Report Type: Report from Study
  Country: US (occurrence: US)
  Receive Date: 20160112
  Receipt Date: 20160113
  Transmission Date: 20160526
  Serious: Yes (Hospitalization, Other)
  Sender: FDA-Public Use
  Company Number: US-BAYER-2015-449490

PATIENT
  Age: 70 Year
  Sex: Male
  Weight: 81.63 kg

DRUGS (5)
  1. ADEMPAS [Suspect]
     Active Substance: RIOCIGUAT
     Indication: PULMONARY HYPERTENSION
     Dosage: 1 MG, UNK
  2. REMODULIN [Suspect]
     Active Substance: TREPROSTINIL
     Dosage: UNK
  3. ADEMPAS [Suspect]
     Active Substance: RIOCIGUAT
     Indication: PULMONARY HYPERTENSION
     Dosage: UNK
     Dates: start: 20151019
  4. COUMADIN [Concomitant]
     Active Substance: WARFARIN SODIUM
     Dosage: UNK
  5. ADEMPAS [Suspect]
     Active Substance: RIOCIGUAT
     Indication: PULMONARY HYPERTENSION
     Dosage: 1 MG, TID
     Route: 048

REACTIONS (15)
  - Malaise [Unknown]
  - Flatulence [Unknown]
  - Headache [None]
  - Nausea [Unknown]
  - Diarrhoea [None]
  - Dyspnoea [Unknown]
  - Emphysema [Unknown]
  - Plasma cell myeloma [Unknown]
  - Peripheral swelling [Unknown]
  - Oedema peripheral [Unknown]
  - Fluid retention [Unknown]
  - Generalised oedema [Unknown]
  - Abdominal distension [Unknown]
  - Irritable bowel syndrome [Unknown]
  - Insomnia [Unknown]
